FAERS Safety Report 6694845-5 (Version None)
Quarter: 2010Q2

REPORT INFORMATION
  Report Type: 
  Country: None (occurrence: None)
  Receive Date: 20100423
  Receipt Date: 20100412
  Transmission Date: 20101027
  Serious: Yes (Other)
  Sender: FDA-Public Use
  Company Number: ZA-JNJFOC-20100401932

PATIENT
  Sex: Female
  Weight: 53 kg

DRUGS (2)
  1. REVELLEX [Suspect]
     Indication: CROHN'S DISEASE
     Dosage: HAD RECEIVED 4 INFUSION OF INFLIXIMAB
     Route: 042
  2. CORTISONE [Concomitant]

REACTIONS (5)
  - ABDOMINAL MASS [None]
  - CONDITION AGGRAVATED [None]
  - CROHN'S DISEASE [None]
  - DRUG INEFFECTIVE [None]
  - PYREXIA [None]
